FAERS Safety Report 17555946 (Version 1)
Quarter: 2020Q1

REPORT INFORMATION
  Report Type: Spontaneous
  Country: FR (occurrence: FR)
  Receive Date: 20200318
  Receipt Date: 20200318
  Transmission Date: 20200409
  Serious: Yes (Hospitalization)
  Sender: FDA-Public Use
  Company Number: FR-TEVA-2020-FR-1202349

PATIENT
  Age: 21 Year
  Sex: Female
  Weight: 60 kg

DRUGS (6)
  1. METHOTREXATE. [Suspect]
     Active Substance: METHOTREXATE
     Indication: SPONDYLITIS
     Dosage: 10 MG
     Route: 048
     Dates: start: 201811
  2. MINIDRIL, COMPRIM? ENROB? [Suspect]
     Active Substance: ETHINYL ESTRADIOL\LEVONORGESTREL
     Indication: ORAL CONTRACEPTION
     Dosage: 21 DF
     Route: 048
     Dates: start: 2013, end: 202001
  3. KETOPROFEN. [Suspect]
     Active Substance: KETOPROFEN
     Indication: GAIT DISTURBANCE
     Dosage: UNKNOWN
     Route: 048
     Dates: start: 201810, end: 201811
  4. NAPROXEN. [Suspect]
     Active Substance: NAPROXEN
     Indication: GAIT DISTURBANCE
     Dosage: UNKNOWN
     Route: 048
     Dates: start: 201808, end: 201810
  5. BENEPALI 50 MG, SOLUTION INJECTABLE EN STYLO PR?REMPLI [Suspect]
     Active Substance: ETANERCEPT
     Indication: SPONDYLITIS
     Dosage: 1 DF
     Route: 058
     Dates: start: 201901, end: 201908
  6. AMGEVITA 40 MG, SOLUTION INJECTABLE EN STYLO PR?REMPLI [Suspect]
     Active Substance: ADALIMUMAB
     Indication: SPONDYLITIS
     Dosage: 1 DF
     Route: 058
     Dates: start: 201908

REACTIONS (1)
  - Hepatic adenoma [Recovering/Resolving]

NARRATIVE: CASE EVENT DATE: 20191122
